FAERS Safety Report 7161571-8 (Version None)
Quarter: 2010Q4

REPORT INFORMATION
  Report Type: 
  Country: None (occurrence: None)
  Receive Date: 20101215
  Receipt Date: 20101206
  Transmission Date: 20110411
  Serious: Yes (Hospitalization)
  Sender: FDA-Public Use
  Company Number: US-JNJFOC-20101202384

PATIENT
  Sex: Male
  Weight: 14.6 kg

DRUGS (11)
  1. INFLIXIMAB, RECOMBINANT [Suspect]
     Indication: CROHN'S DISEASE
     Route: 042
  2. INFLIXIMAB, RECOMBINANT [Suspect]
     Route: 042
  3. INFLIXIMAB, RECOMBINANT [Suspect]
     Indication: INFLAMMATORY BOWEL DISEASE
     Route: 042
  4. INFLIXIMAB, RECOMBINANT [Suspect]
     Route: 042
  5. MESALAMINE [Concomitant]
  6. AZATHIOPRINE [Concomitant]
  7. PREVACID [Concomitant]
  8. MULTI-VITAMINS [Concomitant]
     Route: 050
  9. ELECARE [Concomitant]
  10. COLAZAL [Concomitant]
     Route: 050
  11. IRON [Concomitant]
     Dosage: 0.6 ML X 3
     Route: 050

REACTIONS (1)
  - PYREXIA [None]
